FAERS Safety Report 11973008 (Version 2)
Quarter: 2016Q2

REPORT INFORMATION
  Report Type: Report from Study
  Country: US (occurrence: US)
  Receive Date: 20160128
  Receipt Date: 20160421
  Transmission Date: 20160815
  Serious: No
  Sender: FDA-Public Use
  Company Number: US-AMGEN-USASL2016002271

PATIENT
  Age: 63 Year
  Sex: Female

DRUGS (1)
  1. REPATHA [Suspect]
     Active Substance: EVOLOCUMAB
     Indication: PRODUCT USED FOR UNKNOWN INDICATION
     Dosage: UNK
     Route: 065

REACTIONS (8)
  - Anxiety [Unknown]
  - Device use error [Unknown]
  - Logorrhoea [Unknown]
  - Injection site haemorrhage [Unknown]
  - Injection site pain [Unknown]
  - Tangentiality [Unknown]
  - Agitation [Unknown]
  - Injection site extravasation [Unknown]
